FAERS Safety Report 7228181-5 (Version None)
Quarter: 2011Q1

REPORT INFORMATION
  Report Type: 
  Country: None (occurrence: None)
  Receive Date: 20110114
  Receipt Date: 20110111
  Transmission Date: 20110831
  Serious: Yes (Other)
  Sender: FDA-Public Use
  Company Number: ES-PFIZER INC-2011004420

PATIENT
  Age: 81 Year
  Sex: Male

DRUGS (8)
  1. SINTROM UNO [Concomitant]
     Dosage: 2 TABLETS
     Dates: start: 20110102, end: 20110102
  2. ENALAPRIL [Concomitant]
     Dosage: 2 TABLETS PER DAY
  3. SINTROM UNO [Concomitant]
     Dosage: 2 TABLETS
     Dates: start: 20101230, end: 20101230
  4. SINTROM UNO [Concomitant]
     Dosage: 1 TABLET
     Dates: start: 20101231, end: 20101231
  5. SINTROM UNO [Concomitant]
     Dosage: 2 TABLETS
     Dates: start: 20110101, end: 20110101
  6. TRANKIMAZIN [Suspect]
     Indication: INSOMNIA
     Dosage: 0.25 MG, UNK
     Dates: start: 20110101
  7. SINTROM UNO [Concomitant]
     Dosage: 2 TABLETS
     Dates: start: 20101227, end: 20101227
  8. SINTROM UNO [Concomitant]
     Dosage: 1/2 TABLET
     Dates: start: 20101229, end: 20101229

REACTIONS (1)
  - INTERNATIONAL NORMALISED RATIO INCREASED [None]
